FAERS Safety Report 20159300 (Version 3)
Quarter: 2022Q2

REPORT INFORMATION
  Report Type: Report from Study
  Country: JP (occurrence: JP)
  Receive Date: 20211208
  Receipt Date: 20220530
  Transmission Date: 20220721
  Serious: Yes (Other)
  Sender: FDA-Public Use
  Company Number: JP-TAKEDA-2021TJP123301

PATIENT

DRUGS (2)
  1. NIRAPARIB [Suspect]
     Active Substance: NIRAPARIB
     Indication: Ovarian cancer recurrent
     Dosage: 200 MG
     Route: 048
  2. NIRAPARIB [Suspect]
     Active Substance: NIRAPARIB
     Dosage: UNK
     Route: 048

REACTIONS (1)
  - Renal impairment [Recovered/Resolved]
